FAERS Safety Report 16410810 (Version 1)
Quarter: 2019Q3

REPORT INFORMATION
  Report Type: Spontaneous
  Country: US (occurrence: US)
  Receive Date: 20190608
  Receipt Date: 20190608
  Transmission Date: 20191004
  Serious: No
  Sender: FDA-Public Use
  Company Number: None

PATIENT
  Age: 65 Year
  Sex: Female
  Weight: 90 kg

DRUGS (2)
  1. SPINOSAD TOPICAL SUSPENSION 0.9% [Suspect]
     Active Substance: SPINOSAD
     Indication: LICE INFESTATION
     Dosage: ?          OTHER STRENGTH:MG/GRAM;QUANTITY:1 120 ML;OTHER FREQUENCY:RETREAT IN 7 DAYS;OTHER ROUTE:APPLIED TO HAIR AND SCALP?
     Dates: start: 20190418, end: 20190425
  2. VITAMIN B12 [Concomitant]
     Active Substance: CYANOCOBALAMIN

REACTIONS (2)
  - Product complaint [None]
  - Drug ineffective [None]

NARRATIVE: CASE EVENT DATE: 20190418
